FAERS Safety Report 7874999-5 (Version None)
Quarter: 2011Q4

REPORT INFORMATION
  Report Type: 
  Country: None (occurrence: None)
  Receive Date: 20111031
  Receipt Date: 20100908
  Transmission Date: 20120403
  Serious: No
  Sender: FDA-Public Use
  Company Number: US-BAYER-201033328NA

PATIENT
  Age: 60 Year
  Sex: Male

DRUGS (7)
  1. AVODART [Concomitant]
  2. COREG [Concomitant]
  3. XANAX [Concomitant]
  4. OMEPRAZOLE [Concomitant]
  5. LEVITRA [Suspect]
     Indication: ERECTILE DYSFUNCTION
     Dosage: 20 MG, PRN
     Route: 048
     Dates: start: 20100902
  6. WELLBUTRIN [Concomitant]
  7. ALLEGRA [Concomitant]
     Dosage: UNK

REACTIONS (1)
  - FLUSHING [None]
